FAERS Safety Report 23785677 (Version 3)
Quarter: 2024Q2

REPORT INFORMATION
  Report Type: Spontaneous
  Country: US (occurrence: US)
  Receive Date: 20240425
  Receipt Date: 20240527
  Transmission Date: 20240716
  Serious: No
  Sender: FDA-Public Use
  Company Number: US-BRISTOL-MYERS SQUIBB COMPANY-2024-063055

PATIENT
  Age: 62 Year
  Sex: Female

DRUGS (1)
  1. SPRYCEL [Suspect]
     Active Substance: DASATINIB
     Indication: Lung neoplasm malignant
     Route: 048
     Dates: start: 202404

REACTIONS (4)
  - Fatigue [Unknown]
  - Off label use [Unknown]
  - Pain [Unknown]
  - Urinary tract infection [Unknown]
